FAERS Safety Report 10214299 (Version 1)
Quarter: 2014Q2

REPORT INFORMATION
  Report Type: Spontaneous
  Country: US (occurrence: US)
  Receive Date: 20140603
  Receipt Date: 20140603
  Transmission Date: 20141212
  Serious: No
  Sender: FDA-Public Use
  Company Number: US-PFIZER INC-2014150532

PATIENT
  Age: 59 Year
  Sex: Female
  Weight: 59 kg

DRUGS (3)
  1. CHANTIX [Suspect]
     Indication: SMOKING CESSATION THERAPY
     Dosage: UNK, 2X/DAY
  2. CHANTIX [Suspect]
     Dosage: UNK, 2X/DAY
  3. CHANTIX [Suspect]
     Dosage: UNK, 1X/DAY
     Dates: end: 2014

REACTIONS (2)
  - Abnormal dreams [Unknown]
  - Weight increased [Unknown]
